FAERS Safety Report 13433398 (Version 1)
Quarter: 2017Q2

REPORT INFORMATION
  Report Type: Spontaneous
  Country: SE (occurrence: SE)
  Receive Date: 20170412
  Receipt Date: 20170412
  Transmission Date: 20170830
  Serious: Yes (Hospitalization, Disabling)
  Sender: FDA-Public Use
  Company Number: SE-TEVA-757702ISR

PATIENT
  Age: 65 Year
  Sex: Male

DRUGS (2)
  1. CIPROFLOXACIN. [Suspect]
     Active Substance: CIPROFLOXACIN
     Route: 048
  2. TEGRETOL [Interacting]
     Active Substance: CARBAMAZEPINE
     Route: 048

REACTIONS (2)
  - Liver function test abnormal [Recovered/Resolved with Sequelae]
  - Drug interaction [Recovered/Resolved with Sequelae]
